FAERS Safety Report 10278859 (Version 3)
Quarter: 2016Q1

REPORT INFORMATION
  Report Type: Report from Study
  Country: US (occurrence: US)
  Receive Date: 20140706
  Receipt Date: 20160321
  Transmission Date: 20160525
  Serious: Yes (Other)
  Sender: FDA-Public Use
  Company Number: US-SA-2014SA085325

PATIENT
  Age: 65 Year
  Sex: Female
  Weight: 86.16 kg

DRUGS (16)
  1. LANTUS [Suspect]
     Active Substance: INSULIN GLARGINE
     Indication: DIABETES MELLITUS
     Dosage: DOSE:62 UNIT(S)
     Route: 058
  2. LOVASTATIN. [Concomitant]
     Active Substance: LOVASTATIN
     Indication: DIABETES MELLITUS
     Dosage: PM
  3. PRIMIDONE. [Concomitant]
     Active Substance: PRIMIDONE
     Indication: DIABETES MELLITUS
     Dosage: 1/2 PM
  4. TILAZEM ^ELAN^ [Concomitant]
     Indication: DIABETES MELLITUS
     Dosage: 240 ERC , 1 AM
  5. NOVOLOG [Concomitant]
     Active Substance: INSULIN ASPART
     Indication: DIABETES MELLITUS
     Dosage: SLIDING PEN: 2-14 AS NEEDED
  6. AZELASTINE HYDROCHLORIDE. [Concomitant]
     Active Substance: AZELASTINE HYDROCHLORIDE
     Indication: DIABETES MELLITUS
  7. LANTUS [Suspect]
     Active Substance: INSULIN GLARGINE
     Indication: DIABETES MELLITUS
     Dosage: DOSE: 40 UNITS AM AND 36 UNITS DINNER TIME?FORM: VIAL
     Route: 058
     Dates: start: 201407
  8. ASPIRIN. [Concomitant]
     Active Substance: ASPIRIN
     Indication: DIABETES MELLITUS
     Dosage: AM
  9. METOPROLOL. [Concomitant]
     Active Substance: METOPROLOL
     Indication: DIABETES MELLITUS
     Dosage: 25MG ER AM
  10. RANITIDINE [Concomitant]
     Active Substance: RANITIDINE\RANITIDINE HYDROCHLORIDE
     Indication: DIABETES MELLITUS
     Dosage: PM
  11. ENALAPRIL [Concomitant]
     Active Substance: ENALAPRIL
     Indication: DIABETES MELLITUS
     Dosage: AM
  12. SERTRALINE [Concomitant]
     Active Substance: SERTRALINE HYDROCHLORIDE
     Indication: DIABETES MELLITUS
     Dosage: PM
  13. METFORMIN [Concomitant]
     Active Substance: METFORMIN HYDROCHLORIDE
     Indication: DIABETES MELLITUS
     Dosage: ER TAB 1AM+PM
  14. FLOVENT [Concomitant]
     Active Substance: FLUTICASONE PROPIONATE
     Indication: DIABETES MELLITUS
     Dosage: 100, PUFF
  15. RHINOCORT AQUA [Concomitant]
     Active Substance: BUDESONIDE
     Indication: DIABETES MELLITUS
     Dosage: IN THE MORNING, 2 SPRAYS
  16. FLURBIPROFEN. [Concomitant]
     Active Substance: FLURBIPROFEN
     Indication: DIABETES MELLITUS
     Dosage: 2 AM, 1 PM DAILY

REACTIONS (4)
  - Dehydration [Unknown]
  - Malaise [Unknown]
  - Abdominal pain [Unknown]
  - Drug administration error [Unknown]
